FAERS Safety Report 18221819 (Version 1)
Quarter: 2020Q3

REPORT INFORMATION
  Report Type: Spontaneous
  Country: US (occurrence: US)
  Receive Date: 20200902
  Receipt Date: 20200902
  Transmission Date: 20201103
  Serious: Yes (Life-Threatening)
  Sender: FDA-Public Use
  Company Number: None

PATIENT
  Age: 36 Year
  Sex: Male
  Weight: 103 kg

DRUGS (1)
  1. REMDESIVIR (EUA) (REMDESIVIR (EUA)) [Suspect]
     Active Substance: REMDESIVIR
     Indication: COVID-19
     Route: 042
     Dates: start: 20200710, end: 20200713

REACTIONS (4)
  - Blood urea increased [None]
  - Blood creatinine increased [None]
  - Multiple organ dysfunction syndrome [None]
  - Acute kidney injury [None]

NARRATIVE: CASE EVENT DATE: 20200714
